FAERS Safety Report 5608004-8 (Version None)
Quarter: 2008Q1

REPORT INFORMATION
  Report Type: 
  Country: None (occurrence: None)
  Receive Date: 20080130
  Receipt Date: 20080128
  Transmission Date: 20080703
  Serious: Yes (Other)
  Sender: FDA-Public Use
  Company Number: D0055193A

PATIENT
  Age: 81 Year
  Sex: Male

DRUGS (4)
  1. ZEFFIX [Suspect]
     Indication: HEPATITIS B
     Dosage: 100MG PER DAY
     Route: 048
     Dates: start: 20070814
  2. CANDESARTAN CILEXETIL HYDROCHLOROTHIAZIDE [Concomitant]
     Route: 065
  3. TAMSULOSIN HCL [Concomitant]
     Route: 048
  4. UNAT [Concomitant]
     Indication: ASCITES
     Route: 065

REACTIONS (7)
  - ALANINE AMINOTRANSFERASE INCREASED [None]
  - ASPARTATE AMINOTRANSFERASE INCREASED [None]
  - BACTERIA SPUTUM IDENTIFIED [None]
  - BRONCHITIS [None]
  - COUGH [None]
  - GAMMA-GLUTAMYLTRANSFERASE INCREASED [None]
  - PRURITUS [None]
